FAERS Safety Report 6529535-2 (Version None)
Quarter: 2010Q1

REPORT INFORMATION
  Report Type: 
  Country: None (occurrence: None)
  Receive Date: 20100107
  Receipt Date: 20091230
  Transmission Date: 20100710
  Serious: Yes (Other)
  Sender: FDA-Public Use
  Company Number: US-JNJFOC-20091101832

PATIENT
  Sex: Female
  Weight: 75.3 kg

DRUGS (3)
  1. REMICADE [Suspect]
     Indication: CROHN'S DISEASE
     Dosage: WEEK 0
     Route: 042
     Dates: start: 20091001
  2. IRON [Concomitant]
  3. NEXIUM [Concomitant]

REACTIONS (1)
  - HYPERTENSIVE CRISIS [None]
